FAERS Safety Report 19306116 (Version 1)
Quarter: 2021Q2

REPORT INFORMATION
  Report Type: Spontaneous
  Country: RU (occurrence: RU)
  Receive Date: 20210526
  Receipt Date: 20210526
  Transmission Date: 20210717
  Serious: Yes (Other)
  Sender: FDA-Public Use
  Company Number: RU-ASTRAZENECA-2021A458045

PATIENT
  Age: 58 Year
  Sex: Female
  Weight: 84 kg

DRUGS (2)
  1. OLAPARIB. [Suspect]
     Active Substance: OLAPARIB
     Indication: OVARIAN CANCER STAGE III
     Route: 048
     Dates: start: 20210506, end: 20210507
  2. BEVACIZUMAB. [Concomitant]
     Active Substance: BEVACIZUMAB

REACTIONS (8)
  - Diarrhoea [Unknown]
  - Angioedema [Unknown]
  - Pruritus [Unknown]
  - Urticaria [Unknown]
  - Burning sensation [Unknown]
  - Headache [Unknown]
  - Erythema [Unknown]
  - Blood pressure increased [Unknown]

NARRATIVE: CASE EVENT DATE: 20210506
